FAERS Safety Report 15482692 (Version 1)
Quarter: 2018Q4

REPORT INFORMATION
  Report Type: Spontaneous
  Country: US (occurrence: US)
  Receive Date: 20181010
  Receipt Date: 20181010
  Transmission Date: 20190205
  Serious: Yes (Other)
  Sender: FDA-Public Use
  Company Number: US-PFIZER INC-2018404411

PATIENT
  Age: 47 Year
  Sex: Female

DRUGS (1)
  1. GABAPENTIN. [Suspect]
     Active Substance: GABAPENTIN
     Indication: NEUROPATHY PERIPHERAL
     Dosage: UNK
     Dates: start: 2013

REACTIONS (4)
  - Product use in unapproved indication [Unknown]
  - Weight increased [Unknown]
  - Myocardial infarction [Unknown]
  - Amnesia [Unknown]
